FAERS Safety Report 9643984 (Version 1)
Quarter: 2013Q4

REPORT INFORMATION
  Report Type: Spontaneous
  Country: US (occurrence: US)
  Receive Date: 20131024
  Receipt Date: 20131024
  Transmission Date: 20140711
  Serious: Yes (Other)
  Sender: FDA-Public Use
  Company Number: US-TEVA-440144USA

PATIENT
  Age: 25 Year
  Sex: Female
  Weight: 138.92 kg

DRUGS (2)
  1. PARAGARD 380A [Suspect]
     Indication: CONTRACEPTION
     Route: 015
     Dates: start: 20130930, end: 20131017
  2. PRENATAL VITAMINS [Concomitant]
     Indication: BREAST FEEDING

REACTIONS (6)
  - Vaginal haemorrhage [Unknown]
  - Thrombosis [Recovered/Resolved]
  - Device expulsion [Recovered/Resolved]
  - Influenza [Recovered/Resolved]
  - Vomiting [Recovered/Resolved]
  - Exposure during breast feeding [Unknown]
